FAERS Safety Report 24994044 (Version 3)
Quarter: 2025Q2

REPORT INFORMATION
  Report Type: Report from Study
  Country: BR (occurrence: BR)
  Receive Date: 20250221
  Receipt Date: 20250516
  Transmission Date: 20250717
  Serious: Yes (Hospitalization, Other)
  Sender: TAKEDA
  Company Number: BR-TAKEDA-2024TUS012687

PATIENT
  Age: 81 Year
  Sex: Male

DRUGS (2)
  1. VEDOLIZUMAB [Suspect]
     Active Substance: VEDOLIZUMAB
     Indication: Colitis ulcerative
     Dosage: 300 MILLIGRAM, Q4WEEKS
     Dates: start: 20221104
  2. VEDOLIZUMAB [Suspect]
     Active Substance: VEDOLIZUMAB
     Dosage: 300 MILLIGRAM, Q4WEEKS
     Dates: start: 20240112

REACTIONS (13)
  - Colitis ulcerative [Unknown]
  - Pneumonia bacterial [Recovered/Resolved]
  - Immobile [Unknown]
  - Pneumonia [Recovered/Resolved]
  - Inappropriate schedule of product administration [Unknown]
  - Dengue fever [Recovered/Resolved]
  - Gait disturbance [Unknown]
  - Product availability issue [Unknown]
  - Drug effect less than expected [Unknown]
  - Drug hypersensitivity [Unknown]
  - Mental disorder [Unknown]
  - Product dose omission issue [Unknown]
  - Gastroenteritis [Unknown]

NARRATIVE: CASE EVENT DATE: 20240127
